FAERS Safety Report 9460327 (Version 1)
Quarter: 2013Q3

REPORT INFORMATION
  Report Type: Spontaneous
  Country: US (occurrence: None)
  Receive Date: 20130807
  Receipt Date: 20130807
  Transmission Date: 20140515
  Serious: Yes (Hospitalization)
  Sender: FDA-Public Use
  Company Number: 2011SA071396

PATIENT
  Age: 68 Year
  Sex: Female

DRUGS (12)
  1. CLOPIDOGREL BISULFATE [Suspect]
     Dosage: 10/20/2011 -----ONGOING.
     Dates: start: 20110324, end: 20111007
  2. ASPIRIN [Suspect]
     Dosage: TILL 10/0//2012?10/2011----ONGOING.
     Dates: start: 20110324
  3. PLACEBO [Suspect]
     Indication: TYPE 2 DIABETES MELLITUS
     Route: 048
     Dates: start: 20110324, end: 20111007
  4. METFORMIN [Concomitant]
  5. AMARYL [Concomitant]
  6. CHOLESTEROL-AND TRIGLYCERIDE REDUCERS [Concomitant]
  7. ALL OTHER THERAPEUTIC PRODUCTS [Concomitant]
  8. ANTITHROMBOTIC AGENTS [Concomitant]
  9. ACE INHIBITOR NOS [Concomitant]
  10. BETA BLOCKING AGENTS [Concomitant]
  11. NSAID^S [Concomitant]
  12. PREV MEDS [Concomitant]

REACTIONS (6)
  - Gastrointestinal haemorrhage [None]
  - Microcytic anaemia [None]
  - Dyspnoea [None]
  - Hyperglycaemia [None]
  - Gastritis erosive [None]
  - Hiatus hernia [None]
